FAERS Safety Report 17146857 (Version 1)
Quarter: 2019Q4

REPORT INFORMATION
  Report Type: Spontaneous
  Country: FR (occurrence: FR)
  Receive Date: 20191212
  Receipt Date: 20191212
  Transmission Date: 20200122
  Serious: Yes (Other)
  Sender: FDA-Public Use
  Company Number: FR-MYLANLABS-2019M1122146

PATIENT
  Age: 79 Year
  Sex: Male
  Weight: 86 kg

DRUGS (10)
  1. ENTRESTO [Suspect]
     Active Substance: SACUBITRIL\VALSARTAN
     Dosage: 4 DOSAGE FORM, QD (2 DF, BID (49/51 MG))
  2. CRESTOR [Concomitant]
     Active Substance: ROSUVASTATIN CALCIUM
     Indication: PRODUCT USED FOR UNKNOWN INDICATION
     Dosage: 20 MILLIGRAM, QD (20 MG, QD)
     Route: 048
     Dates: start: 20080110
  3. FUROSEMIDE. [Concomitant]
     Active Substance: FUROSEMIDE
     Indication: PRODUCT USED FOR UNKNOWN INDICATION
     Dosage: 1 UNK, QD (20 OT, QD)
     Route: 048
     Dates: start: 20080110
  4. PLAVIX [Concomitant]
     Active Substance: CLOPIDOGREL BISULFATE
     Indication: PRODUCT USED FOR UNKNOWN INDICATION
     Dosage: 1 UNK, QD (75 OT, QD)
     Route: 048
     Dates: start: 20080110
  5. ALLOPURINOL. [Concomitant]
     Active Substance: ALLOPURINOL
     Indication: PRODUCT USED FOR UNKNOWN INDICATION
     Dosage: 1 UNK, QD (100 OT, QD)
     Route: 048
     Dates: start: 20080110
  6. BISOPROLOL MYLAN [Suspect]
     Active Substance: BISOPROLOL
     Indication: CARDIAC FAILURE
     Dosage: 1 UNK, QD (7.5 OT, QD)
     Route: 048
     Dates: start: 20181114
  7. ENTRESTO [Suspect]
     Active Substance: SACUBITRIL\VALSARTAN
     Indication: ISCHAEMIC CARDIOMYOPATHY
     Dosage: 400 MILLIGRAM, QD (200 (97/103) MG, UNK)
     Route: 048
     Dates: start: 20181114
  8. BISOPROLOL MYLAN [Suspect]
     Active Substance: BISOPROLOL
     Dosage: UNK (5 OT, UNK)
  9. ENTRESTO [Suspect]
     Active Substance: SACUBITRIL\VALSARTAN
     Indication: CARDIAC FAILURE
     Dosage: 300 MILLIGRAM, QD (300 MILLIGRAM, QD (300 MG, QD (TAB 49MG/51MG IN MORNING AND 1 TAB 97MG/103MG IN E
  10. INSPRA [Concomitant]
     Active Substance: EPLERENONE
     Indication: PRODUCT USED FOR UNKNOWN INDICATION
     Dosage: 1 DOSAGE FORM, QD (25 OT, QD)
     Route: 048
     Dates: start: 20080110

REACTIONS (4)
  - Dizziness [Not Recovered/Not Resolved]
  - Product prescribing error [Unknown]
  - Hypotension [Not Recovered/Not Resolved]
  - Fatigue [Unknown]
